FAERS Safety Report 7761403 (Version 6)
Quarter: 2014Q1

REPORT INFORMATION
  Report Type: Spontaneous
  Country: US (occurrence: US)
  Receive Date: 20110114
  Receipt Date: 20140219
  Transmission Date: 20141002
  Serious: Yes (Other)
  Sender: FDA-Public Use
  Company Number: US-PFIZER INC-2011004980

PATIENT
  Age: 48 Year
  Sex: Female
  Weight: 54.42 kg

DRUGS (7)
  1. NEURONTIN [Suspect]
     Indication: MOOD SWINGS
     Dosage: 300 MG, 2X/DAY
     Route: 048
     Dates: start: 20101206
  2. NEURONTIN [Suspect]
     Dosage: 300 MG, 4X/DAY
     Route: 048
  3. ZYPREXA [Suspect]
     Indication: PSYCHOTIC DISORDER
     Dosage: 30 MG DAILY
     Route: 048
     Dates: start: 201010
  4. ZYPREXA [Suspect]
     Dosage: 10 MG, UNK
  5. LITHIUM [Suspect]
     Dosage: UNK
     Dates: start: 201009, end: 201009
  6. COLACE [Concomitant]
     Dosage: UNK
  7. VITAMIN D [Concomitant]
     Dosage: UNK

REACTIONS (9)
  - Hostility [Unknown]
  - Aggression [Unknown]
  - Tooth infection [Unknown]
  - Gingivitis [Unknown]
  - Joint swelling [Recovering/Resolving]
  - Oedema peripheral [Recovering/Resolving]
  - Paraesthesia [Unknown]
  - Drug ineffective [Unknown]
  - Tooth extraction [Unknown]
